FAERS Safety Report 5922171-8 (Version None)
Quarter: 2008Q4

REPORT INFORMATION
  Report Type: 
  Country: None (occurrence: None)
  Receive Date: 20081017
  Receipt Date: 20081008
  Transmission Date: 20090506
  Serious: Yes (Hospitalization)
  Sender: FDA-Public Use
  Company Number: US-JNJFOC-20081002137

PATIENT
  Sex: Male

DRUGS (12)
  1. REMICADE [Suspect]
     Indication: CROHN'S DISEASE
     Route: 042
  2. LASIX [Concomitant]
  3. ALLOPURINOL [Concomitant]
  4. NEXIUM [Concomitant]
  5. ZOLPIDEM [Concomitant]
  6. FLOMAX [Concomitant]
  7. PREDNISONE TAB [Concomitant]
  8. TORADOL [Concomitant]
  9. DIGOXIN [Concomitant]
  10. DILTIAZEM HCL [Concomitant]
  11. METOPROLOL TARTRATE [Concomitant]
  12. TYSABRI [Concomitant]

REACTIONS (3)
  - DIAPHRAGMATIC PARALYSIS [None]
  - MYOPATHY [None]
  - RESPIRATORY ARREST [None]
